FAERS Safety Report 14891646 (Version 4)
Quarter: 2018Q4

REPORT INFORMATION
  Report Type: Spontaneous
  Country: US (occurrence: US)
  Receive Date: 20180514
  Receipt Date: 20181012
  Transmission Date: 20190204
  Serious: Yes (Other)
  Sender: FDA-Public Use
  Company Number: US-SA-2018SA133824

PATIENT
  Age: 67 Year
  Sex: Female

DRUGS (36)
  1. B COMPLEX [BIOTIN;CALCIUM PANTOTHENATE;CHOLINE BITARTRATE;CYANOCOBALAM [Concomitant]
     Dosage: UNK UNK, UNK
     Route: 065
  2. LUTEIN [XANTOFYL] [Concomitant]
     Dosage: UNK UNK, UNK
     Route: 065
  3. ALLEGRA [Suspect]
     Active Substance: FEXOFENADINE HYDROCHLORIDE
     Dosage: UNK UNK,UNK
     Route: 065
  4. SPIRONOLACTONE. [Suspect]
     Active Substance: SPIRONOLACTONE
     Dosage: UNK UNK,UNK
     Route: 065
  5. HYDROCHLORZIDE [Concomitant]
     Active Substance: HYDROCHLOROTHIAZIDE
     Route: 065
  6. BUCLIZINE HYDROCHLORIDE;CODEINE PHOSPHATE;DOCUSATE SODIUM;PARACETAMOL [Concomitant]
     Route: 065
  7. SOLIFENACIN SUCCINATE. [Suspect]
     Active Substance: SOLIFENACIN SUCCINATE
     Indication: INCONTINENCE
     Dosage: UNK UNK,UNK
     Route: 065
     Dates: start: 2007
  8. SOLIFENACIN SUCCINATE. [Suspect]
     Active Substance: SOLIFENACIN SUCCINATE
     Dosage: 5 MG,QD
     Route: 048
     Dates: start: 20080520, end: 20080714
  9. PANTOPRAZOLE [Suspect]
     Active Substance: PANTOPRAZOLE
     Dosage: UNK UNK,UNK
     Route: 065
  10. NASACORT [Suspect]
     Active Substance: TRIAMCINOLONE ACETONIDE
     Dosage: UNK UNK,UNK
     Route: 065
  11. ACIPHEX [Concomitant]
     Active Substance: RABEPRAZOLE SODIUM
     Route: 065
  12. HYPROMELLOSE [Concomitant]
     Active Substance: HYPROMELLOSES
     Route: 065
  13. VACCINIUM MYRTILLUS [Concomitant]
     Dosage: UNK UNK, UNK
     Route: 065
  14. MIGRALEVE [BUCLIZINE HYDROCHLORIDE;CODEINE PHOSPHATE;PARACETAMOL] [Concomitant]
     Dosage: UNK UNK, UNK
     Route: 065
  15. VENLAFAXINE HYDROCHLORIDE. [Suspect]
     Active Substance: VENLAFAXINE HYDROCHLORIDE
     Dosage: UNK UNK,UNK
     Route: 065
  16. EFFEXOR [Concomitant]
     Active Substance: VENLAFAXINE HYDROCHLORIDE
     Route: 065
  17. RESTASIS [Concomitant]
     Active Substance: CYCLOSPORINE
     Route: 065
  18. SYNTHROID [Concomitant]
     Active Substance: LEVOTHYROXINE SODIUM
     Route: 065
  19. TOPAMAX [Concomitant]
     Active Substance: TOPIRAMATE
     Route: 065
  20. VITAMIN B COMPLEX [Concomitant]
     Active Substance: CYANOCOBALAMIN\DEXPANTHENOL\NIACINAMIDE\PYRIDOXINE HYDROCHLORIDE\RIBOFLAVIN 5^-PHOSPHATE SODIUM\THIAMINE HYDROCHLORIDE\VITAMIN B COMPLEX
  21. FOLIC ACID. [Concomitant]
     Active Substance: FOLIC ACID
     Route: 065
  22. LINUM USITATISSIMUM SEED OIL [Concomitant]
     Route: 065
  23. ESTRADIOL. [Suspect]
     Active Substance: ESTRADIOL
     Dosage: UNK UNK,UNK
     Route: 065
  24. TORSEMIDE. [Suspect]
     Active Substance: TORSEMIDE
     Dosage: UNK UNK,UNK
     Route: 065
  25. SYSTANE (HYPROMELLOSE 2910 (4000 MPA.S)) [Concomitant]
     Active Substance: HYPROMELLOSE 2910 (4000 MPA.S)
     Route: 065
  26. SOLIFENACIN SUCCINATE. [Suspect]
     Active Substance: SOLIFENACIN SUCCINATE
     Dosage: 10 MG,QD
     Route: 048
     Dates: start: 20080717
  27. SOLIFENACIN SUCCINATE. [Suspect]
     Active Substance: SOLIFENACIN SUCCINATE
     Dosage: 10 MG,QD
     Route: 048
     Dates: start: 20140127
  28. ACETYLSALICYLIC ACID [Concomitant]
     Active Substance: ASPIRIN
     Route: 065
  29. GENTEAL [CARBOMER;HYPROMELLOSE] [Concomitant]
     Dosage: UNK UNK, UNK
     Route: 065
  30. FLAXSEED OIL [LINUM USITATISSIMUM OIL] [Concomitant]
     Dosage: UNK UNK, UNK
     Route: 065
  31. LOSARTAN POTASSIUM. [Suspect]
     Active Substance: LOSARTAN POTASSIUM
     Dosage: UNK UNK,UNK
     Route: 065
  32. ASCORBIC ACID. [Concomitant]
     Active Substance: ASCORBIC ACID
     Route: 065
  33. XANTOFYL [Concomitant]
     Route: 065
  34. VITAMIN C +BIOFLAVONOIDS [Concomitant]
     Active Substance: ASCORBIC ACID\BIOFLAVONOIDS
     Dosage: UNK UNK, UNK
     Route: 065
  35. CALCIUM CARBONATE. [Concomitant]
     Active Substance: CALCIUM CARBONATE
     Dosage: UNK
  36. BILBERRY [VACCINIUM MYRTILLUS] [Concomitant]
     Dosage: UNK UNK, UNK
     Route: 065

REACTIONS (11)
  - Renal impairment [Unknown]
  - Sunburn [Not Recovered/Not Resolved]
  - Urinary incontinence [Recovering/Resolving]
  - Breast cancer metastatic [Recovered/Resolved]
  - Skin disorder [Not Recovered/Not Resolved]
  - Hyperhidrosis [Not Recovered/Not Resolved]
  - Hot flush [Not Recovered/Not Resolved]
  - Feeling hot [Not Recovered/Not Resolved]
  - Treatment noncompliance [Unknown]
  - Drug effect incomplete [Unknown]
  - Inappropriate schedule of product administration [Unknown]

NARRATIVE: CASE EVENT DATE: 200805
